FAERS Safety Report 8559837 (Version 14)
Quarter: 2013Q1

REPORT INFORMATION
  Report Type: Spontaneous
  Country: US (occurrence: US)
  Receive Date: 20120508
  Receipt Date: 20130122
  Transmission Date: 20140127
  Serious: Yes (Other)
  Sender: FDA-Public Use
  Company Number: US-009507513-2012SP022699

PATIENT
  Age: 42 None
  Sex: Male

DRUGS (3)
  1. PEGINTRON [Suspect]
     Indication: HEPATITIS C
     Dosage: 120 MICROGRAM, QW
     Route: 058
     Dates: start: 20120424, end: 20121116
  2. REBETOL [Suspect]
     Indication: HEPATITIS C
     Dosage: UNK
     Dates: start: 20120424, end: 20121116
  3. VICTRELIS [Suspect]
     Indication: HEPATITIS C
     Dosage: UNK
     Dates: start: 20120522, end: 20121116

REACTIONS (38)
  - Alcohol abuse [Not Recovered/Not Resolved]
  - Alcohol abuse [Unknown]
  - Alcohol abuse [Unknown]
  - Malignant melanoma [Unknown]
  - Malignant melanoma [Unknown]
  - Alcoholic [Unknown]
  - Alcoholic [Unknown]
  - Skin neoplasm excision [Unknown]
  - Malignant melanoma [Unknown]
  - Dizziness [Unknown]
  - Neoplasm [Unknown]
  - Alcoholic [Unknown]
  - Alcoholism [Unknown]
  - Neck pain [Unknown]
  - Influenza [Unknown]
  - Overdose [Unknown]
  - Blood glucose increased [Unknown]
  - Injection site erythema [Unknown]
  - Tooth fracture [Unknown]
  - Tooth extraction [Unknown]
  - Ejaculation failure [Unknown]
  - Pain [Unknown]
  - Psoriasis [Unknown]
  - Chest pain [Unknown]
  - Psoriasis [Unknown]
  - Pharyngeal oedema [Unknown]
  - Injection site haemorrhage [Recovered/Resolved]
  - Dizziness [Unknown]
  - Rash [Unknown]
  - Nausea [Unknown]
  - Weight decreased [Unknown]
  - Pruritus [Unknown]
  - Fatigue [Unknown]
  - Dysgeusia [Unknown]
  - Dysgeusia [Unknown]
  - Injection site swelling [Unknown]
  - Malignant melanoma [Unknown]
  - Chest pain [Unknown]
